FAERS Safety Report 4550167-X (Version None)
Quarter: 2005Q1

REPORT INFORMATION
  Report Type: 
  Country: None (occurrence: None)
  Receive Date: 20050112
  Receipt Date: 20050105
  Transmission Date: 20050727
  Serious: Yes (Other)
  Sender: FDA-Public Use
  Company Number: US-ROCHE-391405

PATIENT
  Age: 37 Year
  Sex: Male
  Weight: 68.4 kg

DRUGS (4)
  1. DACLIZUMAB [Suspect]
     Dosage: 5 DOSES.
     Route: 042
     Dates: start: 20030626, end: 20030910
  2. MYCOPHENOLATE MOFETIL [Suspect]
     Route: 048
     Dates: start: 20030626, end: 20031226
  3. TACROLIMUS [Suspect]
     Route: 048
     Dates: start: 20030629
  4. MEDROL [Suspect]
     Route: 048
     Dates: start: 20030626

REACTIONS (1)
  - MOUTH ULCERATION [None]
